FAERS Safety Report 10761154 (Version 4)
Quarter: 2015Q3

REPORT INFORMATION
  Report Type: Spontaneous
  Country: US (occurrence: US)
  Receive Date: 20150204
  Receipt Date: 20150804
  Transmission Date: 20151125
  Serious: No
  Sender: FDA-Public Use
  Company Number: US-PFIZER INC-2015041210

PATIENT
  Age: 72 Year
  Sex: Female

DRUGS (11)
  1. FOSAMAX [Concomitant]
     Active Substance: ALENDRONATE SODIUM
     Dosage: 70 MG, 1X/DAY
     Dates: start: 1999
  2. COUMADINE [Concomitant]
     Active Substance: WARFARIN SODIUM
     Dosage: 4 MG, UNK (2 MG 2 TAB)
     Dates: start: 1999
  3. GABAPENTIN. [Concomitant]
     Active Substance: GABAPENTIN
     Dosage: 300 MG, UNK
     Dates: start: 1999
  4. FUROSEMIDE. [Concomitant]
     Active Substance: FUROSEMIDE
     Dosage: 20 MG, UNK
     Dates: start: 1999
  5. ASPIRIN. [Concomitant]
     Active Substance: ASPIRIN
     Dosage: 81 MG, UNK
     Dates: start: 1999
  6. LIPITOR [Suspect]
     Active Substance: ATORVASTATIN CALCIUM
     Indication: CARDIAC DISORDER
     Dosage: 10 MG, DAILY
     Route: 048
     Dates: start: 1999
  7. LEVOTHYROXINE. [Concomitant]
     Active Substance: LEVOTHYROXINE
     Dosage: 100 ?G, UNK
     Dates: start: 1999
  8. CENTRUM SILVER [Concomitant]
     Active Substance: VITAMINS
     Dosage: UNK (ONE NOON)
     Dates: start: 1999
  9. NITRO [Concomitant]
     Active Substance: NITROGLYCERIN
     Dosage: UNK, AS NEEDED
     Dates: start: 1999
  10. COMBIVENT [Concomitant]
     Active Substance: ALBUTEROL SULFATE\IPRATROPIUM BROMIDE
     Dosage: UNK, AS NEEDED
     Dates: start: 1999
  11. DIGOXIN. [Concomitant]
     Active Substance: DIGOXIN
     Dosage: 125 ?G, UNK
     Dates: start: 1999

REACTIONS (1)
  - Amnesia [Not Recovered/Not Resolved]

NARRATIVE: CASE EVENT DATE: 199909
